FAERS Safety Report 9191666 (Version 1)
Quarter: 2013Q1

REPORT INFORMATION
  Report Type: Spontaneous
  Country: US (occurrence: US)
  Receive Date: 20130326
  Receipt Date: 20130326
  Transmission Date: 20140127
  Serious: Yes (Hospitalization)
  Sender: FDA-Public Use
  Company Number: US-B.I. PHARMACEUTICALS,INC./RIDGEFIELD-2013-BI-07598GD

PATIENT
  Age: 82 Year
  Sex: Female
  Weight: 79.5 kg

DRUGS (5)
  1. PRADAXA [Suspect]
     Indication: ATRIAL FIBRILLATION
     Dosage: 300 MG
     Route: 048
  2. AMIODARONE [Suspect]
  3. CARVEDILOL [Concomitant]
  4. SIMVASTATIN [Concomitant]
  5. FUROSEMIDE [Concomitant]

REACTIONS (11)
  - Renal failure acute [Recovered/Resolved]
  - Overdose [Unknown]
  - Coagulopathy [Recovered/Resolved]
  - Drug interaction [Unknown]
  - Asthenia [Unknown]
  - Decreased appetite [Unknown]
  - Nausea [Unknown]
  - Vomiting [Unknown]
  - Gastroenteritis [Unknown]
  - Dehydration [Unknown]
  - Dizziness [Unknown]
